FAERS Safety Report 9185531 (Version 1)
Quarter: 2013Q1

REPORT INFORMATION
  Report Type: Spontaneous
  Country: GB (occurrence: GB)
  Receive Date: 20130325
  Receipt Date: 20130325
  Transmission Date: 20140127
  Serious: Yes (Other)
  Sender: FDA-Public Use
  Company Number: GB-MERCK-1303GBR010273

PATIENT
  Age: 33 Year
  Sex: Male

DRUGS (1)
  1. PROPECIA 1MG FILM-COATED TABLET [Suspect]
     Indication: ANDROGENETIC ALOPECIA
     Dosage: 1 DF, QD
     Route: 048
     Dates: start: 20090219, end: 20110213

REACTIONS (10)
  - Hair growth abnormal [Not Recovered/Not Resolved]
  - Proctalgia [Not Recovered/Not Resolved]
  - Erectile dysfunction [Not Recovered/Not Resolved]
  - Genital burning sensation [Not Recovered/Not Resolved]
  - Nausea [Not Recovered/Not Resolved]
  - Penile size reduced [Not Recovered/Not Resolved]
  - Prostatitis [Unknown]
  - Scrotal pain [Not Recovered/Not Resolved]
  - Testicular disorder [Not Recovered/Not Resolved]
  - Paraesthesia [Not Recovered/Not Resolved]
